FAERS Safety Report 21398252 (Version 1)
Quarter: 2022Q3

REPORT INFORMATION
  Report Type: Spontaneous
  Country: US (occurrence: US)
  Receive Date: 20220930
  Receipt Date: 20220930
  Transmission Date: 20221027
  Serious: No
  Sender: FDA-Public Use
  Company Number: US-ANIPHARMA-2022-US-017659

PATIENT
  Age: 48 Year
  Sex: Female
  Weight: 45.81 kg

DRUGS (4)
  1. OXISTAT [Suspect]
     Active Substance: OXICONAZOLE NITRATE
     Indication: Product used for unknown indication
     Dosage: APPLIED TO FACE DAILY
     Route: 061
     Dates: start: 202203
  2. HYDROCORTISONE [Suspect]
     Active Substance: HYDROCORTISONE
  3. unspecified anti-anxiety medication [Concomitant]
  4. LEXAPRO [Concomitant]
     Active Substance: ESCITALOPRAM OXALATE

REACTIONS (2)
  - Application site pruritus [Not Recovered/Not Resolved]
  - Drug ineffective [Not Recovered/Not Resolved]

NARRATIVE: CASE EVENT DATE: 20220301
